FAERS Safety Report 5837161-3 (Version None)
Quarter: 2008Q3

REPORT INFORMATION
  Report Type: 
  Country: None (occurrence: None)
  Receive Date: 20080807
  Receipt Date: 20080804
  Transmission Date: 20090109
  Serious: Yes (Other)
  Sender: FDA-Public Use
  Company Number: US-JNJCH-2008020279

PATIENT
  Age: 88 Year
  Sex: Female
  Weight: 78.5 kg

DRUGS (1)
  1. VISINE TEARS LASTING RELIEF [Suspect]
     Indication: DRY EYE
     Dosage: TEXT:2 DROPS IN EACH EYE TWICE A DAY FOR 3 DA
     Route: 047

REACTIONS (2)
  - APPLICATION SITE BURN [None]
  - VISION BLURRED [None]
